FAERS Safety Report 14517230 (Version 4)
Quarter: 2018Q2

REPORT INFORMATION
  Report Type: Report from Study
  Country: DE (occurrence: DE)
  Receive Date: 20180212
  Receipt Date: 20180411
  Transmission Date: 20180711
  Serious: Yes (Other)
  Sender: FDA-Public Use
  Company Number: DE-ROCHE-2066385

PATIENT
  Age: 50 Year
  Sex: Male
  Weight: 74 kg

DRUGS (20)
  1. EMTRICITABINE [Suspect]
     Active Substance: EMTRICITABINE
     Indication: HIV INFECTION
     Route: 065
     Dates: start: 20131118
  2. FUCICORT [Concomitant]
     Active Substance: BETAMETHASONE VALERATE\FUSIDIC ACID
     Route: 065
     Dates: start: 20140723
  3. CEFTRIAXON [Concomitant]
     Active Substance: CEFTRIAXONE
     Route: 065
     Dates: start: 20150812, end: 20150815
  4. BETAISODONA [Concomitant]
     Active Substance: POVIDONE-IODINE
     Route: 065
     Dates: start: 20150812, end: 20150915
  5. VIOFORM [Concomitant]
     Route: 065
     Dates: start: 20160613
  6. RIBAVIRIN. [Suspect]
     Active Substance: RIBAVIRIN
     Indication: CHRONIC HEPATITIS C
     Dosage: CUMULATIVE DOSE TO FIRST REACTION 52000 MG
     Route: 048
     Dates: start: 20131118, end: 20140109
  7. INDOMET [Concomitant]
     Active Substance: INDOMETHACIN
     Dosage: 1-0-0
     Route: 065
     Dates: start: 20140820
  8. AZITHROMYCIN ANHYDROUS. [Concomitant]
     Active Substance: AZITHROMYCIN ANHYDROUS
     Dosage: CUMULATIVE DOSE: 7500MG
     Route: 065
     Dates: start: 20150630, end: 20150715
  9. VAXIGRIP [Concomitant]
     Active Substance: INFLUENZA VIRUS VACCINE
     Route: 065
     Dates: start: 20151021, end: 20151021
  10. AFLURIA [Concomitant]
     Active Substance: INFLUENZA VIRUS VACCINE TRIVALENT TYPE A+B AFLURIA
     Route: 065
     Dates: start: 20171009, end: 20171009
  11. CEFUROXIM [Concomitant]
     Active Substance: CEFUROXIME
     Route: 065
     Dates: start: 20170313
  12. PEG-INTERFERON ALFA 2A [Suspect]
     Active Substance: PEGINTERFERON ALFA-2A
     Indication: CHRONIC HEPATITIS C
     Dosage: CUMULATIVE DOSE TO FIRST REACTION 1260 MCG
     Route: 058
     Dates: start: 20131118, end: 20140109
  13. CEPHALEXIN. [Concomitant]
     Active Substance: CEPHALEXIN
     Dosage: CUMULATIVE DOSE: 9000MG
     Route: 065
     Dates: start: 20150812, end: 20150815
  14. TRAMAL [Concomitant]
     Active Substance: TRAMADOL
     Route: 065
     Dates: start: 20160613
  15. ROCEPHIN [Concomitant]
     Active Substance: CEFTRIAXONE SODIUM
     Route: 065
     Dates: start: 20170313
  16. BISOPROLOL [Concomitant]
     Active Substance: BISOPROLOL
     Route: 065
     Dates: start: 20061101
  17. TENOFOVIR [Suspect]
     Active Substance: TENOFOVIR
     Indication: HIV INFECTION
     Route: 065
     Dates: start: 20160613
  18. IBUPROFEN. [Concomitant]
     Active Substance: IBUPROFEN
     Dosage: 1-1-1
     Route: 065
     Dates: start: 20160613
  19. RILPIVIRINE [Suspect]
     Active Substance: RILPIVIRINE
     Indication: HIV INFECTION
     Route: 065
     Dates: start: 20160613
  20. VALTREX [Concomitant]
     Active Substance: VALACYCLOVIR HYDROCHLORIDE
     Dosage: 2-2-2-2
     Route: 065
     Dates: start: 20160613

REACTIONS (3)
  - Facial paresis [Recovered/Resolved]
  - Skin lesion [Recovered/Resolved]
  - Venous thrombosis [Recovered/Resolved]

NARRATIVE: CASE EVENT DATE: 20170306
